FAERS Safety Report 12720062 (Version 1)
Quarter: 2016Q3

REPORT INFORMATION
  Report Type: Spontaneous
  Country: FR (occurrence: FR)
  Receive Date: 20160907
  Receipt Date: 20160907
  Transmission Date: 20161109
  Serious: Yes (Death)
  Sender: FDA-Public Use
  Company Number: FR-009507513-1608FRA015410

PATIENT
  Age: 57 Year
  Sex: Female

DRUGS (1)
  1. MK-5172A [Suspect]
     Active Substance: ELBASVIR\GRAZOPREVIR ANHYDROUS
     Indication: CHRONIC HEPATITIS C
     Dosage: 1 DF, QD
     Route: 048
     Dates: start: 20160721, end: 20160727

REACTIONS (3)
  - Cerebral ischaemia [Fatal]
  - Multiple organ dysfunction syndrome [Fatal]
  - Coma [Fatal]

NARRATIVE: CASE EVENT DATE: 20160726
